FAERS Safety Report 5534497-0 (Version None)
Quarter: 2007Q4

REPORT INFORMATION
  Report Type: 
  Country: None (occurrence: None)
  Receive Date: 20071205
  Receipt Date: 20071126
  Transmission Date: 20080405
  Serious: Yes (Hospitalization)
  Sender: FDA-Public Use
  Company Number: FR-BRISTOL-MYERS SQUIBB COMPANY-14003693

PATIENT
  Age: 72 Year
  Sex: Female

DRUGS (10)
  1. CYCLOPHOSPHAMIDE [Suspect]
     Indication: BREAST CANCER
     Route: 042
     Dates: start: 20070401, end: 20070701
  2. TAXOTERE [Suspect]
     Indication: BREAST CANCER
     Route: 042
     Dates: start: 20070401, end: 20070701
  3. FELODIPINE [Concomitant]
  4. CLOPIDOGREL BISULFATE [Concomitant]
  5. KARDEGIC [Concomitant]
  6. TAHOR [Concomitant]
  7. LEVOTHYROX [Concomitant]
  8. ROWASA [Concomitant]
  9. LOPRESSOR [Concomitant]
  10. MOLSIDOMINE [Concomitant]

REACTIONS (1)
  - CHOLANGITIS SCLEROSING [None]
